FAERS Safety Report 6536396-4 (Version None)
Quarter: 2010Q1

REPORT INFORMATION
  Report Type: 
  Country: None (occurrence: None)
  Receive Date: 20100113
  Receipt Date: 20091217
  Transmission Date: 20100710
  Serious: No
  Sender: FDA-Public Use
  Company Number: US-ALLERGAN-0917234US

PATIENT
  Age: 46 Year
  Sex: Female

DRUGS (3)
  1. LATISSE [Suspect]
     Indication: GROWTH OF EYELASHES
     Dosage: 1 GTT, 4X/WEEK
     Route: 061
     Dates: start: 20091101
  2. LATISSE [Suspect]
     Dosage: 1 GTT, QHS
     Route: 061
     Dates: end: 20091214
  3. REFRESH TEARS [Concomitant]

REACTIONS (2)
  - DRUG ADMINISTRATION ERROR [None]
  - OCULAR HYPERAEMIA [None]
